FAERS Safety Report 10040784 (Version 1)
Quarter: 2014Q1

REPORT INFORMATION
  Report Type: Spontaneous
  Country: US (occurrence: None)
  Receive Date: 20140326
  Receipt Date: 20140326
  Transmission Date: 20141002
  Serious: Yes (Life-Threatening, Disabling, Other)
  Sender: FDA-Public Use
  Company Number: None

PATIENT
  Age: 56 Year
  Sex: Female
  Weight: 64.41 kg

DRUGS (4)
  1. VENLAFAXINE [Suspect]
     Indication: DEPRESSION
     Dosage: 1 ONCE DAILY TAKEN BY MOUTH
     Route: 048
     Dates: start: 20140325
  2. VENLAFAXINE [Suspect]
     Indication: BIPOLAR DISORDER
     Dosage: 1 ONCE DAILY TAKEN BY MOUTH
     Route: 048
     Dates: start: 20140325
  3. VENLAFAXINE [Suspect]
     Dosage: 1 ONCE DAILY TAKEN BY MOUTH
     Route: 048
     Dates: start: 20140325
  4. VENLAFAXINE [Suspect]
     Dosage: 1 ONCE DAILY TAKEN BY MOUTH
     Route: 048
     Dates: start: 20140325

REACTIONS (6)
  - Abnormal behaviour [None]
  - Psychomotor hyperactivity [None]
  - Product quality issue [None]
  - Product substitution issue [None]
  - Inappropriate schedule of drug administration [None]
  - Product substitution issue [None]
